FAERS Safety Report 21792595 (Version 2)
Quarter: 2023Q1

REPORT INFORMATION
  Report Type: Report from Study
  Country: US (occurrence: US)
  Receive Date: 20221229
  Receipt Date: 20230221
  Transmission Date: 20230417
  Serious: Yes (Other)
  Sender: FDA-Public Use
  Company Number: US-ABBVIE-4252327

PATIENT
  Sex: Female

DRUGS (1)
  1. HUMIRA [Suspect]
     Active Substance: ADALIMUMAB
     Indication: Crohn^s disease
     Route: 058
     Dates: start: 20220812

REACTIONS (3)
  - Colostomy [Unknown]
  - Skin irritation [Not Recovered/Not Resolved]
  - Epigastric discomfort [Unknown]

NARRATIVE: CASE EVENT DATE: 20220101
